FAERS Safety Report 26210804 (Version 1)
Quarter: 2025Q4

REPORT INFORMATION
  Report Type: Spontaneous
  Country: US (occurrence: US)
  Receive Date: 20251230
  Receipt Date: 20251230
  Transmission Date: 20260119
  Serious: Yes (Hospitalization, Other)
  Sender: SANOFI AVENTIS
  Company Number: US-SANOFI-02760909

PATIENT
  Age: 85 Year
  Sex: Male

DRUGS (2)
  1. LANTUS SOLOSTAR [Suspect]
     Active Substance: INSULIN GLARGINE
     Indication: Diabetes mellitus
     Dosage: 25 IU, QD
     Dates: start: 2000
  2. HUMALOG [Concomitant]
     Active Substance: INSULIN LISPRO
     Dosage: 32 IU, QID

REACTIONS (2)
  - Hip fracture [Unknown]
  - Accident [Unknown]

NARRATIVE: CASE EVENT DATE: 20250101
